FAERS Safety Report 10235415 (Version 1)
Quarter: 2014Q1

REPORT INFORMATION
  Report Type: Spontaneous
  Country: US (occurrence: None)
  Receive Date: 20140306
  Receipt Date: 20140306
  Transmission Date: 20141002
  Serious: Yes (Other)
  Sender: FDA-Public Use
  Company Number: 163-21880-13092197

PATIENT
  Age: 74 Year
  Sex: Female

DRUGS (7)
  1. REVLIMID (LENALIDOMIDE) (25 MILLIGRAM, CAPSULES) [Suspect]
     Indication: PLASMA CELL MYELOMA
     Route: 048
     Dates: start: 200901
  2. AMLODIPINE BESYLATE (AMLODIPINE BESILATE) [Concomitant]
  3. DEXAMETHASONE (DEXAMETHASONE) [Concomitant]
  4. ACYCLOVIR (ACICLOVIR) (ACICLOVIR) [Concomitant]
  5. VITAMIN D (ERGOCALCIFEROL) [Concomitant]
  6. ADVIL (IBUPROFEN) [Concomitant]
  7. RA TURERIC (OTHER NON0THERAPEUTIC AIUXILIARY PRODUCTS) [Concomitant]

REACTIONS (3)
  - Skin exfoliation [None]
  - Seasonal allergy [None]
  - Nasal congestion [None]
